FAERS Safety Report 16943439 (Version 2)
Quarter: 2019Q4

REPORT INFORMATION
  Report Type: Spontaneous
  Country: US (occurrence: US)
  Receive Date: 20191022
  Receipt Date: 20191108
  Transmission Date: 20200122
  Serious: Yes (Life-Threatening, Hospitalization, Other)
  Sender: FDA-Public Use
  Company Number: US-B.I. PHARMACEUTICALS,INC./RIDGEFIELD-2019-US-108828

PATIENT
  Age: 82 Year
  Sex: Male

DRUGS (1)
  1. TRADJENTA [Suspect]
     Active Substance: LINAGLIPTIN
     Indication: TYPE 2 DIABETES MELLITUS
     Dosage: 5MG DAILY
     Route: 065
     Dates: start: 201907, end: 201909

REACTIONS (5)
  - Renal failure [Not Recovered/Not Resolved]
  - Asthenia [Unknown]
  - Wound infection [Unknown]
  - Ulcer haemorrhage [Unknown]
  - Poisoning [Not Recovered/Not Resolved]

NARRATIVE: CASE EVENT DATE: 201909
